FAERS Safety Report 15641022 (Version 2)
Quarter: 2018Q4

REPORT INFORMATION
  Report Type: Spontaneous
  Country: US (occurrence: US)
  Receive Date: 20181120
  Receipt Date: 20181214
  Transmission Date: 20190205
  Serious: Yes (Hospitalization)
  Sender: FDA-Public Use
  Company Number: US-CELGENEUS-USA-20181103997

PATIENT
  Age: 5 Year
  Sex: Male
  Weight: 14.3 kg

DRUGS (8)
  1. THALOMID [Suspect]
     Active Substance: THALIDOMIDE
     Indication: OFF LABEL USE
  2. CELECOXIB. [Concomitant]
     Active Substance: CELECOXIB
     Indication: CHEMOTHERAPY
     Dosage: 100 MILLIGRAM
     Route: 048
     Dates: start: 20181015
  3. FENOFIBRATE. [Concomitant]
     Active Substance: FENOFIBRATE
     Indication: CHEMOTHERAPY
     Dosage: 48 MILLIGRAM
     Route: 048
     Dates: start: 20181001
  4. AVASTIN [Concomitant]
     Active Substance: BEVACIZUMAB
     Indication: CHEMOTHERAPY
     Dosage: 140 MILLIGRAM
     Route: 041
     Dates: start: 20181001
  5. HEPARIN [Concomitant]
     Active Substance: HEPARIN SODIUM
     Indication: CATHETER MANAGEMENT
     Dosage: 300 MILLIGRAM
     Route: 041
     Dates: start: 2018
  6. PENTAMIDINE [Concomitant]
     Active Substance: PENTAMIDINE
     Indication: PROPHYLAXIS
     Dosage: 56 MILLIGRAM
     Route: 041
     Dates: start: 20181015
  7. THALOMID [Suspect]
     Active Substance: THALIDOMIDE
     Indication: BRAIN NEOPLASM MALIGNANT
     Dosage: 50 MILLIGRAM
     Route: 048
     Dates: start: 20181001
  8. ETOPOSIDE. [Concomitant]
     Active Substance: ETOPOSIDE
     Indication: CHEMOTHERAPY
     Dosage: 50 MILLIGRAM
     Route: 048
     Dates: start: 20181015

REACTIONS (1)
  - Seizure [Recovered/Resolved]

NARRATIVE: CASE EVENT DATE: 20181127
